FAERS Safety Report 5787333-1 (Version None)
Quarter: 2008Q2

REPORT INFORMATION
  Report Type: 
  Country: None (occurrence: None)
  Receive Date: 20080623
  Receipt Date: 20080623
  Transmission Date: 20081010
  Serious: Yes (Life-Threatening, Hospitalization)
  Sender: FDA-Public Use
  Company Number: None

PATIENT
  Age: 48 Year
  Sex: Female

DRUGS (13)
  1. WARFARIN SODIUM [Suspect]
     Indication: CEREBROVASCULAR ACCIDENT
     Dosage: 2.5MG DAILY PO
     Route: 048
     Dates: start: 20061001, end: 20070709
  2. FLUCONAZOLE [Suspect]
     Indication: FUNGAL PERITONITIS
     Dosage: 200MG DAILY PO
     Route: 048
     Dates: start: 20070703, end: 20070725
  3. NPH ILETIN II [Concomitant]
  4. FOLIC ACID [Concomitant]
  5. CYANOCOBALMIN SL [Concomitant]
  6. LINEZOLID [Concomitant]
  7. SEVELAMAR [Concomitant]
  8. ERYTHROPOETIN [Concomitant]
  9. CINACALCET [Concomitant]
  10. ZOLPIDIEM CR [Concomitant]
  11. ATORVASTATIN [Concomitant]
  12. ASPIRIN [Concomitant]
  13. GABAPENTIN [Concomitant]

REACTIONS (1)
  - INTERNATIONAL NORMALISED RATIO INCREASED [None]
